FAERS Safety Report 5107997-5 (Version None)
Quarter: 2006Q3

REPORT INFORMATION
  Report Type: 
  Country: None (occurrence: None)
  Receive Date: 20060919
  Receipt Date: 20060724
  Transmission Date: 20061208
  Serious: Yes (Hospitalization)
  Sender: FDA-Public Use
  Company Number: US-JNJFOC-20060704981

PATIENT
  Age: 4 Year
  Sex: Male

DRUGS (5)
  1. REMICADE [Suspect]
     Indication: KAWASAKI'S DISEASE
     Route: 042
  2. ZITHROMAX [Suspect]
     Indication: KAWASAKI'S DISEASE
  3. IMMUNE GLOBULIN INTRAVENOUS (HUMAN) [Concomitant]
     Indication: KAWASAKI'S DISEASE
     Route: 042
  4. ASPIRIN [Concomitant]
     Indication: KAWASAKI'S DISEASE
  5. ANTIBIOTICS [Concomitant]
     Route: 050

REACTIONS (1)
  - STEVENS-JOHNSON SYNDROME [None]
